FAERS Safety Report 16338178 (Version 1)
Quarter: 2019Q2

REPORT INFORMATION
  Report Type: Report from Study
  Country: US (occurrence: US)
  Receive Date: 20190521
  Receipt Date: 20190521
  Transmission Date: 20190711
  Serious: Yes (Other)
  Sender: FDA-Public Use
  Company Number: US-JNJFOC-20190522379

PATIENT
  Age: 79 Year
  Sex: Male

DRUGS (1)
  1. IMBRUVICA [Suspect]
     Active Substance: IBRUTINIB
     Indication: LYMPHOMA
     Route: 048
     Dates: start: 20190410

REACTIONS (4)
  - Complication associated with device [Recovering/Resolving]
  - Nausea [Recovering/Resolving]
  - Catheter site pain [Recovering/Resolving]
  - Catheter site haemorrhage [Recovering/Resolving]

NARRATIVE: CASE EVENT DATE: 20190503
